FAERS Safety Report 4659130-1 (Version None)
Quarter: 2005Q2

REPORT INFORMATION
  Report Type: 
  Country: None (occurrence: None)
  Receive Date: 20050511
  Receipt Date: 20050504
  Transmission Date: 20051028
  Serious: Yes (Other)
  Sender: FDA-Public Use
  Company Number: 200513890US

PATIENT
  Age: 24 Year
  Sex: Female

DRUGS (1)
  1. CLOMID [Suspect]
     Route: 048
     Dates: start: 20041001

REACTIONS (4)
  - CROHN'S DISEASE [None]
  - OVARIAN CYST [None]
  - THYROID DISORDER [None]
  - UTERINE LEIOMYOMA [None]
